FAERS Safety Report 24713915 (Version 1)
Quarter: 2024Q4

REPORT INFORMATION
  Report Type: Spontaneous
  Country: US (occurrence: US)
  Receive Date: 20241209
  Receipt Date: 20241209
  Transmission Date: 20250114
  Serious: No
  Sender: REGENERON
  Company Number: US-REGENERON PHARMACEUTICALS, INC.-2024-078973

PATIENT
  Sex: Male

DRUGS (2)
  1. EYLEA [Suspect]
     Active Substance: AFLIBERCEPT
     Indication: Diabetic retinopathy
     Dosage: 2 MG, INTO LEFT EYE EVERY FIVE WEEKS, FORMULATION: PFS (GERRESHEIMER)
     Route: 031
     Dates: end: 20240430
  2. EYLEA [Suspect]
     Active Substance: AFLIBERCEPT
     Indication: Macular oedema

REACTIONS (1)
  - Eye disorder [Unknown]
